FAERS Safety Report 5037807-6 (Version None)
Quarter: 2006Q2

REPORT INFORMATION
  Report Type: 
  Country: None (occurrence: None)
  Receive Date: 20060605
  Receipt Date: 20060316
  Transmission Date: 20061013
  Serious: No
  Sender: FDA-Public Use
  Company Number: 06012RX

PATIENT
  Age: 44 Year
  Sex: Female
  Weight: 68.0396 kg

DRUGS (1)
  1. TINDAMAX [Suspect]
     Indication: VAGINITIS BACTERIAL
     Dosage: 4 TABLETS AT ONCE 047
     Dates: start: 20060308

REACTIONS (6)
  - ANOREXIA [None]
  - BLISTER [None]
  - EYE IRRITATION [None]
  - HEADACHE [None]
  - SWELLING FACE [None]
  - URTICARIA [None]
